FAERS Safety Report 8544323-3 (Version None)
Quarter: 2012Q3

REPORT INFORMATION
  Report Type: 
  Country: None (occurrence: None)
  Receive Date: 20120727
  Receipt Date: 20070625
  Transmission Date: 20120928
  Serious: Yes (Other)
  Sender: FDA-Public Use
  Company Number: CO-PFIZER INC-2012179602

PATIENT
  Age: 79 Year
  Sex: Female

DRUGS (5)
  1. CAPTOPRIL [Concomitant]
     Dosage: 90 MG, 3X/DAY
  2. METOPROLOL TARTRATE [Concomitant]
     Dosage: 60 MG, 2X/DAY
  3. ACETYLSALICYLIC ACID [Concomitant]
     Dosage: 30 MG, 1X/DAY
  4. LIPITOR [Suspect]
     Indication: DYSLIPIDAEMIA
     Dosage: 30 MG, 1X/DAY
     Route: 048
  5. LEVOTHYROXINE SODIUM [Concomitant]
     Dosage: 30 UG, 1X/DAY

REACTIONS (1)
  - BREAST MASS [None]
